FAERS Safety Report 10052562 (Version 1)
Quarter: 2014Q1

REPORT INFORMATION
  Report Type: Spontaneous
  Country: US (occurrence: None)
  Receive Date: 20140331
  Receipt Date: 20140331
  Transmission Date: 20141002
  Serious: Yes (Other)
  Sender: FDA-Public Use
  Company Number: KAD201403-000369

PATIENT
  Age: 72 Year
  Sex: Female
  Weight: 56.62 kg

DRUGS (3)
  1. RIBAVIRIN [Suspect]
  2. ACTIMMUNE [Suspect]
     Indication: HEPATITIS C
     Dates: start: 201401
  3. SOVALDI [Suspect]

REACTIONS (2)
  - Anaemia [None]
  - Drug interaction [None]
